FAERS Safety Report 4392657-9 (Version None)
Quarter: 2004Q3

REPORT INFORMATION
  Report Type: 
  Country: None (occurrence: None)
  Receive Date: 20040708
  Receipt Date: 20040625
  Transmission Date: 20050211
  Serious: Yes (Other)
  Sender: FDA-Public Use
  Company Number: PHNU2004DE02295

PATIENT
  Age: 74 Year
  Sex: Male

DRUGS (5)
  1. SANDIMMUNE [Suspect]
     Indication: HEART TRANSPLANT
     Dosage: 200 MG DAILY
     Route: 048
     Dates: start: 19890101
  2. AMLODIPINE [Concomitant]
  3. ALLOPURINOL [Concomitant]
  4. PRAVASTATIN [Concomitant]
  5. BISOPROLOL [Concomitant]

REACTIONS (6)
  - BLOOD CREATININE INCREASED [None]
  - NEPHROPATHY TOXIC [None]
  - PLATELET COUNT DECREASED [None]
  - POLYCYTHAEMIA [None]
  - RED BLOOD CELL COUNT INCREASED [None]
  - WHITE BLOOD CELL COUNT DECREASED [None]
